FAERS Safety Report 8225239-9 (Version None)
Quarter: 2012Q1

REPORT INFORMATION
  Report Type: 
  Country: None (occurrence: None)
  Receive Date: 20120321
  Receipt Date: 20120308
  Transmission Date: 20120608
  Serious: Yes (Death, Hospitalization)
  Sender: FDA-Public Use
  Company Number: US-ACTELION-A-US2012-61562

PATIENT

DRUGS (21)
  1. TRACLEER [Suspect]
     Indication: PULMONARY ARTERIAL HYPERTENSION
     Dosage: UNK
     Route: 048
     Dates: start: 20050101, end: 20120129
  2. EPOPROSTENOL SODIUM [Suspect]
     Indication: PULMONARY ARTERIAL HYPERTENSION
     Dosage: 38 NG/KG, PER MIN
     Route: 042
     Dates: start: 20110412
  3. SILDENAFIL [Concomitant]
  4. DICLOFENAC SODIUM [Concomitant]
  5. IRON [Concomitant]
  6. TRAMADOL HCL [Concomitant]
  7. ZOLPIDEM [Concomitant]
  8. MAGNESIUM SULFATE [Concomitant]
  9. LOSARTAN POTASSIUM [Concomitant]
  10. ZOFRAN [Concomitant]
  11. REGLAN [Concomitant]
  12. FLEXERIL [Concomitant]
  13. CALCIUM + VITAMIN D [Concomitant]
  14. AMITRIPTYLINE HCL [Concomitant]
  15. LOMOTIL [Concomitant]
  16. ZOLOFT [Concomitant]
  17. OXYGEN [Concomitant]
  18. MULTI-VITAMIN [Concomitant]
  19. PRILOSEC [Concomitant]
  20. BENADRYL [Concomitant]
  21. ALLOPURINOL [Concomitant]

REACTIONS (15)
  - URINARY TRACT INFECTION [None]
  - EXERCISE TOLERANCE DECREASED [None]
  - DYSPHONIA [None]
  - GASTROINTESTINAL TUBE INSERTION [None]
  - ANAEMIA [None]
  - DISEASE PROGRESSION [None]
  - PLEURAL EFFUSION [None]
  - TOOTH ABSCESS [None]
  - PULMONARY ARTERIAL HYPERTENSION [None]
  - DIARRHOEA [None]
  - VOCAL CORD PARESIS [None]
  - PYREXIA [None]
  - PULMONARY CONGESTION [None]
  - PNEUMONIA ASPIRATION [None]
  - POST PROCEDURAL HAEMATOMA [None]
